FAERS Safety Report 24019737 (Version 4)
Quarter: 2025Q2

REPORT INFORMATION
  Report Type: Spontaneous
  Country: DE (occurrence: DE)
  Receive Date: 20240627
  Receipt Date: 20250401
  Transmission Date: 20250716
  Serious: Yes (Death, Other)
  Sender: LABORATOIRES SERB
  Company Number: DE-SERB S.A.S.-2158611

PATIENT
  Age: 22 Year
  Sex: Male

DRUGS (3)
  1. CYANOKIT [Suspect]
     Active Substance: HYDROXOCOBALAMIN
     Indication: Respiratory fume inhalation disorder
     Dates: start: 20230627, end: 20230627
  2. CYANOKIT [Suspect]
     Active Substance: HYDROXOCOBALAMIN
     Indication: Chemical poisoning
  3. NexoBrid UNK (Concentrate of proteolytic enzymes enriched in bromelain [Concomitant]
     Dates: start: 20230627, end: 20230627

REACTIONS (9)
  - Hyperlactacidaemia [Fatal]
  - Renal failure [Unknown]
  - Inappropriate schedule of product administration [Unknown]
  - Multiple organ dysfunction syndrome [Unknown]
  - Arrhythmia [Fatal]
  - Supraventricular tachycardia [Fatal]
  - Atrioventricular block complete [Fatal]
  - Metabolic acidosis [Fatal]
  - Cardiogenic shock [Unknown]

NARRATIVE: CASE EVENT DATE: 20230629
